FAERS Safety Report 23387058 (Version 2)
Quarter: 2024Q1

REPORT INFORMATION
  Report Type: Spontaneous
  Country: US (occurrence: US)
  Receive Date: 20240110
  Receipt Date: 20240126
  Transmission Date: 20240410
  Serious: No
  Sender: FDA-Public Use
  Company Number: US-MIRATI-MT2023PM05633

PATIENT

DRUGS (3)
  1. KRAZATI [Suspect]
     Active Substance: ADAGRASIB
     Indication: Bile duct cancer
     Dosage: 200 MG, BID
     Route: 048
     Dates: start: 20231222, end: 20231222
  2. KRAZATI [Suspect]
     Active Substance: ADAGRASIB
     Indication: Hepatic cancer
     Dosage: 400 MG, BID
     Route: 048
     Dates: start: 20231223, end: 20231223
  3. KRAZATI [Suspect]
     Active Substance: ADAGRASIB
     Dosage: 600 MG, BID
     Route: 048
     Dates: start: 20231224, end: 202401

REACTIONS (7)
  - Dysstasia [Not Recovered/Not Resolved]
  - Asthenia [Not Recovered/Not Resolved]
  - Decreased appetite [Not Recovered/Not Resolved]
  - Fatigue [Not Recovered/Not Resolved]
  - Pain in extremity [Not Recovered/Not Resolved]
  - Abdominal pain upper [Not Recovered/Not Resolved]
  - Off label use [Unknown]

NARRATIVE: CASE EVENT DATE: 20231222
